FAERS Safety Report 13972948 (Version 3)
Quarter: 2017Q4

REPORT INFORMATION
  Report Type: Spontaneous
  Country: DE (occurrence: DE)
  Receive Date: 20170915
  Receipt Date: 20171101
  Transmission Date: 20180321
  Serious: Yes (Other)
  Sender: FDA-Public Use
  Company Number: DE-GLAXOSMITHKLINE-DE2017GSK141675

PATIENT
  Sex: Male
  Weight: 74 kg

DRUGS (3)
  1. DUODART [Suspect]
     Active Substance: DUTASTERIDE\TAMSULOSIN
     Indication: BENIGN PROSTATIC HYPERPLASIA
     Dosage: UNK
     Dates: start: 201705, end: 201708
  2. DUODART [Suspect]
     Active Substance: DUTASTERIDE\TAMSULOSIN
     Dosage: UNK
  3. CANDESARTAN. [Concomitant]
     Active Substance: CANDESARTAN
     Indication: PRODUCT USED FOR UNKNOWN INDICATION
     Dosage: 8 MG, QD

REACTIONS (5)
  - Retinal oedema [Recovered/Resolved]
  - Weight decreased [Recovering/Resolving]
  - Macular oedema [Unknown]
  - Macular hole [Unknown]
  - Oedema [Recovering/Resolving]

NARRATIVE: CASE EVENT DATE: 2017
